FAERS Safety Report 23939022 (Version 3)
Quarter: 2024Q3

REPORT INFORMATION
  Report Type: Spontaneous
  Country: BR (occurrence: BR)
  Receive Date: 20240604
  Receipt Date: 20240702
  Transmission Date: 20241016
  Serious: Yes (Life-Threatening)
  Sender: MERCK
  Company Number: BR-009507513-2405BRA009463

PATIENT
  Age: 37 Year
  Sex: Male

DRUGS (2)
  1. WELIREG [Suspect]
     Active Substance: BELZUTIFAN
     Indication: Von Hippel-Lindau disease
     Dosage: 40 MG/TABLET, 3 TABLETS, QD
     Route: 048
     Dates: start: 20240422
  2. WELIREG [Suspect]
     Active Substance: BELZUTIFAN
     Dosage: 40 MG/TABLET, 3 TABLETS, QD
     Dates: start: 20240529

REACTIONS (8)
  - Product dose omission issue [Unknown]
  - Nausea [Not Recovered/Not Resolved]
  - Somnolence [Not Recovered/Not Resolved]
  - Lung disorder [Unknown]
  - Alcohol interaction [Recovered/Resolved]
  - Catatonia [Recovered/Resolved]
  - Lethargy [Recovered/Resolved]
  - Product distribution issue [Unknown]

NARRATIVE: CASE EVENT DATE: 20240101
